FAERS Safety Report 19494670 (Version 1)
Quarter: 2021Q3

REPORT INFORMATION
  Report Type: Spontaneous
  Country: US (occurrence: US)
  Receive Date: 20210706
  Receipt Date: 20210706
  Transmission Date: 20211014
  Serious: No
  Sender: FDA-Public Use
  Company Number: US-DRREDDYS-SPO/USA/21/0137219

PATIENT
  Age: 23 Year
  Sex: Female

DRUGS (1)
  1. ZENATANE [Suspect]
     Active Substance: ISOTRETINOIN
     Indication: ACNE
     Dosage: RMA ISSUE DATE: 2/APRIL/2021 9:14:12 AM, 4/MAY/2021 11:19:36 AM, 2/JUN/2021 11:24:36 AM

REACTIONS (2)
  - Epistaxis [Unknown]
  - Headache [Unknown]
